FAERS Safety Report 9899628 (Version 1)
Quarter: 2014Q1

REPORT INFORMATION
  Report Type: Spontaneous
  Country: US (occurrence: BE)
  Receive Date: 20140214
  Receipt Date: 20140214
  Transmission Date: 20141002
  Serious: Yes (Death)
  Sender: FDA-Public Use
  Company Number: BE-FRI-1000054268

PATIENT
  Age: 68 Year
  Sex: Male
  Weight: 80 kg

DRUGS (5)
  1. ASENAPINE [Suspect]
     Indication: BIPOLAR DISORDER
     Dosage: 10 MG
     Route: 060
     Dates: start: 20131211, end: 20140108
  2. ASENAPINE [Suspect]
     Dosage: 10 MG
     Route: 060
     Dates: start: 20140108, end: 20140128
  3. ASENAPINE [Suspect]
     Dosage: 20 MG
     Route: 060
     Dates: start: 20140129, end: 20140129
  4. ASENAPINE [Suspect]
     Dosage: 10 MG
     Route: 060
     Dates: start: 20140130, end: 20140202
  5. LITHIUM [Concomitant]
     Dosage: 750 MG
     Dates: start: 20140129, end: 20140202

REACTIONS (1)
  - Completed suicide [Fatal]
